FAERS Safety Report 24283134 (Version 2)
Quarter: 2024Q3

REPORT INFORMATION
  Report Type: Report from Study
  Country: TW (occurrence: TW)
  Receive Date: 20240904
  Receipt Date: 20240910
  Transmission Date: 20241017
  Serious: No
  Sender: BAYER
  Company Number: TW-BAYER-2024A126435

PATIENT
  Sex: Male

DRUGS (14)
  1. STIVARGA [Suspect]
     Active Substance: REGORAFENIB MONOHYDRATE
     Indication: Hepatocellular carcinoma
     Dosage: 40 MG, QD
     Route: 048
     Dates: start: 202404
  2. STIVARGA [Suspect]
     Active Substance: REGORAFENIB MONOHYDRATE
     Indication: Hepatocellular carcinoma
     Dosage: 40 MG, BID
     Route: 048
     Dates: start: 2024
  3. DETRUSITOL SR [Concomitant]
     Active Substance: TOLTERODINE TARTRATE
     Dosage: 4 MG, QD, HIGH DOSE, HS
     Route: 048
  4. SPIRONOLACTONE [Concomitant]
     Active Substance: SPIRONOLACTONE
     Dosage: 25 MG, QD, AMPC
     Route: 048
  5. FURIDE [Concomitant]
     Dosage: 40 MG, QD, AMPC
     Route: 048
  6. XYZAL [Concomitant]
     Active Substance: LEVOCETIRIZINE DIHYDROCHLORIDE
     Dosage: 5 MG, QD, HS
     Route: 048
  7. SENNAPUR [Concomitant]
     Dosage: 37.5 MG, QD, HS
     Route: 048
  8. PSYLLIUM [Concomitant]
     Active Substance: PLANTAGO SEED
     Dosage: 6 G, QD, AMPC
     Route: 048
  9. LOWEN [Concomitant]
     Dosage: 0.5 MG, QD, HS
     Route: 048
  10. TAMSULOSIN HYDROCHLORIDE [Concomitant]
     Active Substance: TAMSULOSIN HYDROCHLORIDE
     Dosage: 0.4 MG, QD, HS
     Route: 048
  11. BAO-GAN [Concomitant]
     Dosage: 150 MG, BID, PC
     Route: 048
  12. ALINAMIN F [Concomitant]
     Active Substance: FURSULTIAMINE HYDROCHLORIDE
     Dosage: 50 MG, BID, PC
     Route: 048
  13. KASCOAL [Concomitant]
     Dosage: 80 MG, BID, PC
     Route: 048
  14. FAMOTIDINE [Concomitant]
     Active Substance: FAMOTIDINE
     Dosage: 20 MG, BID, PC
     Route: 048

REACTIONS (2)
  - Abdominal distension [None]
  - Off label use [None]

NARRATIVE: CASE EVENT DATE: 20240101
